FAERS Safety Report 12763276 (Version 2)
Quarter: 2016Q4

REPORT INFORMATION
  Report Type: Spontaneous
  Country: PT (occurrence: PT)
  Receive Date: 20160920
  Receipt Date: 20161101
  Transmission Date: 20170207
  Serious: Yes (Hospitalization)
  Sender: FDA-Public Use
  Company Number: PT-TEVA-691254ISR

PATIENT
  Age: 7 Year
  Sex: Male

DRUGS (1)
  1. AMOXICILLIN. [Suspect]
     Active Substance: AMOXICILLIN
     Indication: INFECTION
     Route: 048

REACTIONS (7)
  - Drug ineffective [Unknown]
  - Pyrexia [Recovered/Resolved]
  - Rash maculo-papular [Recovered/Resolved]
  - Hypoxia [Recovered/Resolved]
  - Off label use [Unknown]
  - Cough [Recovered/Resolved]
  - Respiratory distress [Recovered/Resolved]
